FAERS Safety Report 16153306 (Version 2)
Quarter: 2019Q3

REPORT INFORMATION
  Report Type: Report from Study
  Country: US (occurrence: US)
  Receive Date: 20190403
  Receipt Date: 20190814
  Transmission Date: 20191004
  Serious: Yes (Death, Other)
  Sender: FDA-Public Use
  Company Number: PHHY2019US075319

PATIENT
  Age: 5 Year
  Sex: Female

DRUGS (3)
  1. CYCLOPHOSPHAMIDE. [Concomitant]
     Active Substance: CYCLOPHOSPHAMIDE
     Indication: CHEMOTHERAPY
     Route: 065
  2. KYMRIAH [Suspect]
     Active Substance: TISAGENLECLEUCEL
     Indication: B-CELL TYPE ACUTE LEUKAEMIA
     Dosage: UNK, ONCE/SINGLE
     Route: 041
     Dates: start: 2018
  3. FLUDARABINE [Concomitant]
     Active Substance: FLUDARABINE PHOSPHATE
     Indication: CHEMOTHERAPY
     Route: 065

REACTIONS (8)
  - Depressed level of consciousness [Unknown]
  - Hypogammaglobulinaemia [Unknown]
  - Malignant neoplasm progression [Unknown]
  - Neutrophil count decreased [Recovered/Resolved]
  - Death [Fatal]
  - Cytopenia [Unknown]
  - B-cell type acute leukaemia [Unknown]
  - Treatment failure [Unknown]
